FAERS Safety Report 6743124-6 (Version None)
Quarter: 2010Q2

REPORT INFORMATION
  Report Type: 
  Country: None (occurrence: None)
  Receive Date: 20100527
  Receipt Date: 20100513
  Transmission Date: 20101027
  Serious: Yes (Other)
  Sender: FDA-Public Use
  Company Number: PHHY2010CA22487

PATIENT
  Sex: Female

DRUGS (3)
  1. EXJADE [Suspect]
     Indication: SICKLE CELL ANAEMIA
     Dosage: 1500 MG DAILY
     Route: 048
  2. CALCIUM CARBONATE [Concomitant]
  3. FOLIC ACID [Concomitant]

REACTIONS (4)
  - DECREASED APPETITE [None]
  - POOR PERIPHERAL CIRCULATION [None]
  - RASH [None]
  - SKIN LESION [None]
